FAERS Safety Report 4412962-7 (Version None)
Quarter: 2004Q3

REPORT INFORMATION
  Report Type: 
  Country: None (occurrence: None)
  Receive Date: 20040730
  Receipt Date: 20040730
  Transmission Date: 20050211
  Serious: No
  Sender: FDA-Public Use
  Company Number: None

PATIENT
  Age: 69 Year
  Sex: Male

DRUGS (7)
  1. TEMAZEPAM [Suspect]
     Indication: INSOMNIA
     Dosage: 15 MG Q HS PRN
     Dates: start: 20040421, end: 20040422
  2. ACETAMINOPHEN/OXYCODONE [Concomitant]
  3. CLOPIDOGREL BISULFATE [Concomitant]
  4. DILTIAZEM (TIAZAC) [Concomitant]
  5. RANITIDINE HCL [Concomitant]
  6. SIMVASTATIN [Concomitant]
  7. TIMOLOL MALEATE [Concomitant]

REACTIONS (1)
  - FALL [None]
